FAERS Safety Report 4283198-8 (Version None)
Quarter: 2004Q1

REPORT INFORMATION
  Report Type: 
  Country: None (occurrence: None)
  Receive Date: 20040129
  Receipt Date: 20040122
  Transmission Date: 20041129
  Serious: Yes (Life-Threatening)
  Sender: FDA-Public Use
  Company Number: 2004195736IT

PATIENT
  Age: 18 Year
  Sex: Female

DRUGS (4)
  1. ZIVOXID (LINEZOLID) SOLUTION, STERILE [Suspect]
     Indication: SEPSIS
     Dosage: 600 MG, ONCE, IV
     Route: 042
     Dates: start: 20040122, end: 20040122
  2. CLEXANE (HEPARIN-FRACTION, SODIUM SALT) [Concomitant]
  3. LASIX [Concomitant]
  4. ANTRA [Concomitant]

REACTIONS (3)
  - BRONCHOSPASM [None]
  - ERYTHEMA [None]
  - HYPOTENSION [None]
